FAERS Safety Report 18982089 (Version 2)
Quarter: 2021Q1

REPORT INFORMATION
  Report Type: Spontaneous
  Country: JP (occurrence: JP)
  Receive Date: 20210308
  Receipt Date: 20210326
  Transmission Date: 20210420
  Serious: Yes (Death, Other)
  Sender: FDA-Public Use
  Company Number: JP-GLAXOSMITHKLINE-JP2021JPN058388

PATIENT
  Age: 73 Year
  Sex: Male
  Weight: 33.4 kg

DRUGS (13)
  1. BAKTAR [Concomitant]
     Active Substance: SULFAMETHOXAZOLE\TRIMETHOPRIM
     Dosage: 1 G, QD
  2. BELSOMRA [Concomitant]
     Active Substance: SUVOREXANT
     Dosage: 15 MG, QD
  3. LANSOPRAZOLE TABLET [Concomitant]
     Active Substance: LANSOPRAZOLE
     Dosage: 30 MG, QD
  4. PREDNISOLONE TABLETS [Suspect]
     Active Substance: PREDNISOLONE
     Dosage: 20 MG, QD
  5. ERYTHROCIN [Concomitant]
     Active Substance: ERYTHROMYCIN LACTOBIONATE
     Dosage: 100 MG, TID
  6. BERAPROST SODIUM TABLET [Concomitant]
     Dosage: 20 ?G, TID
  7. LAC?B (BIFIDOBACTERIUM INFANTIS + BIFIDOBACTERIUM LONGUM) [Concomitant]
     Dosage: 1 G, TID
  8. AMLODIPINE BESILATE TABLET [Concomitant]
     Active Substance: AMLODIPINE BESYLATE
     Dosage: 5 MG, QD
  9. METHYCOBAL TABLET [Concomitant]
     Dosage: 500 ?G, TID
  10. CARBOCISTEINE TABLETS [Concomitant]
     Active Substance: CARBOCYSTEINE
     Dosage: 500 MG, TID
  11. TELMISARTAN TABLETS [Concomitant]
     Active Substance: TELMISARTAN
     Dosage: 20 MG, QD
  12. MEPOLIZUMAB [Suspect]
     Active Substance: MEPOLIZUMAB
     Indication: EOSINOPHILIC GRANULOMATOSIS WITH POLYANGIITIS
     Dosage: 300 MG
     Route: 058
     Dates: start: 20201119, end: 20201119
  13. TULOBUTEROL TAPE [Concomitant]
     Dosage: 2 MG, 1D

REACTIONS (6)
  - Pneumonia [Fatal]
  - Condition aggravated [Unknown]
  - Gastrointestinal haemorrhage [Unknown]
  - Urinary tract infection [Fatal]
  - Eosinophilic granulomatosis with polyangiitis [Unknown]
  - Gastrointestinal perforation [Unknown]

NARRATIVE: CASE EVENT DATE: 20210114
